FAERS Safety Report 10159093 (Version 1)
Quarter: 2014Q2

REPORT INFORMATION
  Report Type: Report from Study
  Country: ES (occurrence: ES)
  Receive Date: 20140508
  Receipt Date: 20140508
  Transmission Date: 20141212
  Serious: Yes (Other)
  Sender: FDA-Public Use
  Company Number: ES-ROCHE-1392171

PATIENT
  Age: 49 Year
  Sex: Female

DRUGS (4)
  1. TRASTUZUMAB [Suspect]
     Indication: NEOPLASM MALIGNANT
     Route: 042
     Dates: start: 20140207
  2. LAPATINIB [Suspect]
     Indication: NEOPLASM MALIGNANT
     Route: 048
     Dates: start: 20140207
  3. DEXCHLORPHENIRAMINE MALEATE [Concomitant]
     Route: 065
     Dates: start: 20140207, end: 20140410
  4. PARACETAMOL [Concomitant]
     Indication: PREMEDICATION
     Route: 065
     Dates: start: 20140207, end: 20140410

REACTIONS (1)
  - Alanine aminotransferase increased [Not Recovered/Not Resolved]
